FAERS Safety Report 6601588-2 (Version None)
Quarter: 2010Q1

REPORT INFORMATION
  Report Type: 
  Country: None (occurrence: None)
  Receive Date: 20100225
  Receipt Date: 20100115
  Transmission Date: 20100710
  Serious: No
  Sender: FDA-Public Use
  Company Number: US-KINGPHARMUSA00001-K201000059

PATIENT
  Age: 51 Year
  Sex: Female

DRUGS (4)
  1. FLECTOR [Suspect]
     Indication: NECK PAIN
     Dosage: 1 PATCH, SINGLE
     Route: 061
  2. LIDOCAINE [Suspect]
     Indication: GASTROOESOPHAGEAL REFLUX DISEASE
     Dosage: 10 ML, SINGLE
     Route: 048
  3. BENADRYL [Suspect]
     Dosage: 10 ML, SINGLE
     Route: 048
  4. MYLANTA [Suspect]
     Dosage: 30 ML, SINGLE
     Route: 048

REACTIONS (5)
  - DEPRESSED LEVEL OF CONSCIOUSNESS [None]
  - HYPERHIDROSIS [None]
  - HYPOAESTHESIA [None]
  - LETHARGY [None]
  - RASH MACULAR [None]
